FAERS Safety Report 24351226 (Version 1)
Quarter: 2024Q3

REPORT INFORMATION
  Report Type: Report from Study
  Country: BG (occurrence: BG)
  Receive Date: 20240923
  Receipt Date: 20240923
  Transmission Date: 20241017
  Serious: No
  Sender: ROCHE
  Company Number: BG-ROCHE-2683762

PATIENT
  Age: 60 Year
  Sex: Female
  Weight: 80.0 kg

DRUGS (7)
  1. TRASTUZUMAB [Suspect]
     Active Substance: TRASTUZUMAB
     Indication: HER2 positive breast cancer
     Route: 041
     Dates: start: 20190123, end: 20190509
  2. DOCETAXEL [Suspect]
     Active Substance: DOCETAXEL\DOCETAXEL ANHYDROUS
     Indication: HER2 positive breast cancer
     Dosage: MOST RECENT DOSE WAS RECEIVED ON 09/MAY/2019
     Route: 042
     Dates: start: 20190123
  3. LAPATINIB [Suspect]
     Active Substance: LAPATINIB
     Indication: HER2 positive breast cancer
     Route: 048
     Dates: start: 20191105
  4. TRASTUZUMAB [Suspect]
     Active Substance: TRASTUZUMAB
     Indication: HER2 positive breast cancer
     Route: 058
     Dates: start: 20190530
  5. ADEMETIONINE [Concomitant]
     Active Substance: ADEMETIONINE
     Route: 042
     Dates: start: 20200421, end: 20200423
  6. ADEMETIONINE [Concomitant]
     Active Substance: ADEMETIONINE
     Route: 048
     Dates: start: 20200424, end: 20200503
  7. METHYLPREDNISOLONE [Concomitant]
     Active Substance: METHYLPREDNISOLONE
     Dosage: ONGOING = NOT CHECKED
     Route: 042
     Dates: start: 20200421, end: 20200423

REACTIONS (1)
  - Pain in jaw [Unknown]

NARRATIVE: CASE EVENT DATE: 20200327
